FAERS Safety Report 19501218 (Version 5)
Quarter: 2022Q1

REPORT INFORMATION
  Report Type: Spontaneous
  Country: US (occurrence: US)
  Receive Date: 20210707
  Receipt Date: 20220303
  Transmission Date: 20220423
  Serious: No
  Sender: FDA-Public Use
  Company Number: US-KARYOPHARM-2021KPT000782

PATIENT

DRUGS (7)
  1. XPOVIO [Suspect]
     Active Substance: SELINEXOR
     Indication: Plasma cell myeloma
     Dosage: 80 MG, WEEKLY
     Route: 048
     Dates: start: 20210603, end: 20210727
  2. XPOVIO [Suspect]
     Active Substance: SELINEXOR
     Dosage: 40 MG, WEEKLY FOR 3 WEEKS
     Route: 048
     Dates: start: 20210728
  3. ACYCLOVIR [Concomitant]
     Active Substance: ACYCLOVIR
  4. EMEND [Concomitant]
     Active Substance: APREPITANT
  5. XANAX [Concomitant]
     Active Substance: ALPRAZOLAM
  6. ZOFRAN [Concomitant]
     Active Substance: ONDANSETRON HYDROCHLORIDE
  7. VELCADE [Concomitant]
     Active Substance: BORTEZOMIB

REACTIONS (15)
  - Cough [Recovering/Resolving]
  - Disorientation [Recovering/Resolving]
  - Photopsia [Not Recovered/Not Resolved]
  - Night sweats [Unknown]
  - Taste disorder [Unknown]
  - Back pain [Unknown]
  - Dental caries [Unknown]
  - Skin irritation [Unknown]
  - Musculoskeletal pain [Unknown]
  - Visual impairment [Unknown]
  - Nausea [Not Recovered/Not Resolved]
  - Vomiting [Recovering/Resolving]
  - Fatigue [Not Recovered/Not Resolved]
  - Vision blurred [Recovering/Resolving]
  - Cataract [Unknown]

NARRATIVE: CASE EVENT DATE: 20210101
